FAERS Safety Report 20412432 (Version 2)
Quarter: 2022Q1

REPORT INFORMATION
  Report Type: Spontaneous
  Country: GB (occurrence: GB)
  Receive Date: 20220201
  Receipt Date: 20220227
  Transmission Date: 20220423
  Serious: Yes (Other)
  Sender: FDA-Public Use
  Company Number: GB-BRISTOL-MYERS SQUIBB COMPANY-BMS-2022-012212

PATIENT
  Age: 65 Year
  Sex: Female

DRUGS (4)
  1. IPILIMUMAB [Suspect]
     Active Substance: IPILIMUMAB
     Indication: Renal cell carcinoma
     Dosage: UNK
     Route: 065
  2. NIVOLUMAB [Suspect]
     Active Substance: NIVOLUMAB
     Indication: Renal cell carcinoma
     Dosage: UNK
     Route: 065
  3. CANNABIDIOL\HERBALS [Concomitant]
     Active Substance: CANNABIDIOL\HERBALS
     Indication: Sleep disorder
     Dosage: UNK
     Route: 065
  4. SLEEPEEZY [Concomitant]
     Indication: Sleep disorder
     Dosage: UNK
     Route: 065

REACTIONS (16)
  - Anaphylactic shock [Unknown]
  - Angina pectoris [Unknown]
  - Eye haemorrhage [Unknown]
  - Back pain [Unknown]
  - Lung disorder [Unknown]
  - Oedema [Unknown]
  - Headache [Unknown]
  - Diarrhoea [Unknown]
  - Constipation [Unknown]
  - Gingival abscess [Unknown]
  - Rheumatic disorder [Unknown]
  - Rash [Unknown]
  - Swelling [Unknown]
  - Impaired healing [Unknown]
  - Irritability [Unknown]
  - Fatigue [Unknown]
